FAERS Safety Report 16836535 (Version 2)
Quarter: 2020Q1

REPORT INFORMATION
  Report Type: Spontaneous
  Country: IT (occurrence: IT)
  Receive Date: 20190921
  Receipt Date: 20200207
  Transmission Date: 20200409
  Serious: Yes (Other)
  Sender: FDA-Public Use
  Company Number: IT-AMGEN-ITASP2019150612

PATIENT
  Age: 66 Year
  Sex: Female

DRUGS (5)
  1. KANJINTI [Suspect]
     Active Substance: TRASTUZUMAB-ANNS
     Indication: BREAST CANCER
     Dosage: UNK
     Route: 042
     Dates: start: 20190204, end: 20190809
  2. TOTALIP [Concomitant]
     Active Substance: ATORVASTATIN
     Dosage: 25 MILLIGRAM
  3. LETROZOLO AHCL [Concomitant]
     Active Substance: LETROZOLE
  4. EFEXOR [Concomitant]
     Active Substance: VENLAFAXINE HYDROCHLORIDE
     Dosage: 150 MILLIGRAM
  5. RIZEN [Concomitant]
     Active Substance: CLOTIAZEPAM
     Dosage: UNK

REACTIONS (3)
  - Neutropenia [Unknown]
  - Haemorrhage [Unknown]
  - Pruritus [Unknown]

NARRATIVE: CASE EVENT DATE: 20190301
